FAERS Safety Report 20636262 (Version 1)
Quarter: 2022Q1

REPORT INFORMATION
  Report Type: Spontaneous
  Country: US (occurrence: US)
  Receive Date: 20220325
  Receipt Date: 20220325
  Transmission Date: 20220423
  Serious: Yes (Other)
  Sender: FDA-Public Use
  Company Number: US-GLAXOSMITHKLINE-US2022GSK053530

PATIENT
  Sex: Female

DRUGS (12)
  1. RANITIDINE [Suspect]
     Active Substance: RANITIDINE
     Indication: Dyspepsia
     Dosage: 150 MG, QD
     Dates: start: 199001, end: 200512
  2. RANITIDINE [Suspect]
     Active Substance: RANITIDINE
     Indication: Barrett^s oesophagus
     Dosage: UNKNOWN AT THIS TIME, QD
     Dates: start: 199001, end: 200512
  3. RANITIDINE [Suspect]
     Active Substance: RANITIDINE
     Indication: Hernia
  4. RANITIDINE [Suspect]
     Active Substance: RANITIDINE
     Indication: Dyspepsia
     Dosage: 150 MG, QD
     Dates: start: 199001, end: 200512
  5. RANITIDINE [Suspect]
     Active Substance: RANITIDINE
     Indication: Barrett^s oesophagus
     Dosage: UNKNOWN AT THIS TIME, QD
     Dates: start: 199001, end: 200512
  6. RANITIDINE [Suspect]
     Active Substance: RANITIDINE
     Indication: Hernia
  7. RANITIDINE [Suspect]
     Active Substance: RANITIDINE
     Indication: Dyspepsia
     Dosage: 150 MG, QD
     Dates: start: 199001, end: 200512
  8. RANITIDINE [Suspect]
     Active Substance: RANITIDINE
     Indication: Barrett^s oesophagus
     Dosage: UNKNOWN AT THIS TIME, QD
     Dates: start: 199001, end: 200512
  9. RANITIDINE [Suspect]
     Active Substance: RANITIDINE
     Indication: Hernia
  10. RANITIDINE [Suspect]
     Active Substance: RANITIDINE
     Indication: Dyspepsia
     Dosage: 150 MG, QD
     Dates: start: 199001, end: 200512
  11. RANITIDINE [Suspect]
     Active Substance: RANITIDINE
     Indication: Barrett^s oesophagus
     Dosage: UNKNOWN AT THIS TIME, QD
     Dates: start: 199001, end: 200512
  12. RANITIDINE [Suspect]
     Active Substance: RANITIDINE
     Indication: Hernia

REACTIONS (2)
  - Bladder cancer [Unknown]
  - Renal disorder [Unknown]
